FAERS Safety Report 8614146-5 (Version None)
Quarter: 2012Q3

REPORT INFORMATION
  Report Type: 
  Country: None (occurrence: None)
  Receive Date: 20120813
  Receipt Date: 20120813
  Transmission Date: 20120928
  Serious: Yes (Hospitalization)
  Sender: FDA-Public Use
  Company Number: None

PATIENT
  Sex: Female
  Weight: 96.1 kg

DRUGS (7)
  1. HYDROCODONE BITARTRATE [Concomitant]
  2. ZOMETA [Suspect]
     Dosage: 4 MG
  3. CALCIUM CARBONATE [Suspect]
     Dosage: 42000 MG
  4. LUNESTA [Concomitant]
  5. SUMATRIPTAN [Concomitant]
  6. MORPHINE SULFATE [Concomitant]
  7. VITAMIN D [Suspect]
     Dosage: 33600 IU

REACTIONS (9)
  - HAEMATEMESIS [None]
  - OESOPHAGITIS [None]
  - PNEUMONIA [None]
  - CONVULSION [None]
  - FOAMING AT MOUTH [None]
  - MENTAL STATUS CHANGES [None]
  - RENAL FAILURE ACUTE [None]
  - RESPIRATORY FAILURE [None]
  - SEPSIS [None]
